FAERS Safety Report 5745355-0 (Version None)
Quarter: 2008Q2

REPORT INFORMATION
  Report Type: 
  Country: None (occurrence: None)
  Receive Date: 20080521
  Receipt Date: 20080509
  Transmission Date: 20081010
  Serious: Yes (Death, Hospitalization)
  Sender: FDA-Public Use
  Company Number: GB-ROCHE-559233

PATIENT
  Sex: Male

DRUGS (3)
  1. XELODA [Suspect]
     Indication: COLORECTAL CANCER
     Route: 048
     Dates: start: 20080108, end: 20080121
  2. UNSPECIFIED DRUGS [Concomitant]
     Indication: ANTIBIOTIC THERAPY
     Dosage: ANTIBIOTICS TAKEN AT END OF 2007.
     Route: 042
     Dates: end: 20070901
  3. UNSPECIFIED DRUGS [Concomitant]
     Dosage: ANTIBIOTICS TAKEN AT END OF 2007.
     Route: 048
     Dates: end: 20070901

REACTIONS (4)
  - DIARRHOEA [None]
  - MUCOSAL INFLAMMATION [None]
  - MULTI-ORGAN FAILURE [None]
  - NEUTROPENIC SEPSIS [None]
